FAERS Safety Report 15685905 (Version 2)
Quarter: 2018Q4

REPORT INFORMATION
  Report Type: Spontaneous
  Country: US (occurrence: US)
  Receive Date: 20181204
  Receipt Date: 20181206
  Transmission Date: 20190205
  Serious: No
  Sender: FDA-Public Use
  Company Number: US-SA-2018SA326372

PATIENT
  Age: 61 Year
  Sex: Female

DRUGS (2)
  1. LANTUS SOLOSTAR [Suspect]
     Active Substance: INSULIN GLARGINE
     Indication: TYPE 2 DIABETES MELLITUS
     Dosage: 22 U, BID
  2. LANTUS SOLOSTAR [Suspect]
     Active Substance: INSULIN GLARGINE
     Dosage: 16 U, BID
     Dates: start: 20180927

REACTIONS (15)
  - Blood glucose increased [Unknown]
  - Device issue [Unknown]
  - Fall [Unknown]
  - Device operational issue [Unknown]
  - Limb injury [Unknown]
  - Walking aid user [Unknown]
  - Ankle fracture [Unknown]
  - Product quality issue [Unknown]
  - Incorrect dose administered [Unknown]
  - Joint swelling [Unknown]
  - Underdose [Unknown]
  - Peripheral swelling [Unknown]
  - Ligament sprain [Unknown]
  - Blood glucose decreased [Unknown]
  - Product dose omission [Unknown]
